FAERS Safety Report 16945441 (Version 2)
Quarter: 2019Q4

REPORT INFORMATION
  Report Type: Spontaneous
  Country: DE (occurrence: DE)
  Receive Date: 20191022
  Receipt Date: 20191104
  Transmission Date: 20200122
  Serious: Yes (Hospitalization)
  Sender: FDA-Public Use
  Company Number: NVSC2019DE010000

PATIENT
  Age: 41 Year
  Sex: Male

DRUGS (1)
  1. SUMATRIPTAN-HEXAL 100 MG FILMTABLETTEN [Suspect]
     Active Substance: SUMATRIPTAN
     Indication: PRODUCT USED FOR UNKNOWN INDICATION
     Dosage: UNK
     Route: 065
     Dates: start: 2017

REACTIONS (2)
  - Blood pressure systolic increased [Unknown]
  - Flushing [Unknown]

NARRATIVE: CASE EVENT DATE: 2017
